FAERS Safety Report 20130754 (Version 1)
Quarter: 2021Q4

REPORT INFORMATION
  Report Type: Report from Study
  Country: ES (occurrence: ES)
  Receive Date: 20211130
  Receipt Date: 20211130
  Transmission Date: 20220303
  Serious: Yes (Other)
  Sender: FDA-Public Use
  Company Number: ES-SA-SAC20210930000501

PATIENT
  Age: 60 Year
  Sex: Female
  Weight: 80 kg

DRUGS (4)
  1. FLUOXETINE [Suspect]
     Active Substance: FLUOXETINE HYDROCHLORIDE
     Indication: Anxiety
     Dosage: 0.5 TABLETS
     Route: 048
  2. PAROXETINE [Suspect]
     Active Substance: PAROXETINE
     Indication: Anxiety
     Dosage: 0.5 TABLETS
     Route: 048
  3. INSULIN GLARGINE [Suspect]
     Active Substance: INSULIN GLARGINE
     Indication: Type 2 diabetes mellitus
     Dosage: 50 DOSAGE FORM, QD (50 U, QD)
     Route: 058
     Dates: start: 20190319
  4. METFORMIN [Concomitant]
     Active Substance: METFORMIN HYDROCHLORIDE
     Indication: Type 2 diabetes mellitus
     Dosage: 1 DOSAGE FORM, BID (DOSE: 1-0-1)
     Route: 048

REACTIONS (11)
  - Cataract [Unknown]
  - Blood glucose increased [Unknown]
  - Negative thoughts [Unknown]
  - Anxiety [Unknown]
  - Nervousness [Unknown]
  - Abnormal dreams [Unknown]
  - Headache [Unknown]
  - Pollakiuria [Unknown]
  - Dizziness [Unknown]
  - Fatigue [Unknown]
  - Restlessness [Unknown]

NARRATIVE: CASE EVENT DATE: 20210926
